FAERS Safety Report 10201708 (Version 2)
Quarter: 2014Q2

REPORT INFORMATION
  Report Type: Spontaneous
  Country: US (occurrence: US)
  Receive Date: 20140528
  Receipt Date: 20140528
  Transmission Date: 20141212
  Serious: No
  Sender: FDA-Public Use
  Company Number: US-BRISTOL-MYERS SQUIBB COMPANY-18973024

PATIENT
  Age: 64 Year
  Sex: Female
  Weight: 90.25 kg

DRUGS (12)
  1. METFORMIN HCL [Suspect]
     Dosage: 500 BID
  2. PLAVIX [Suspect]
     Indication: PERIPHERAL ARTERIAL OCCLUSIVE DISEASE
     Dates: start: 2006
  3. TENORMIN [Concomitant]
  4. GLYBURIDE [Concomitant]
  5. PLETAL [Concomitant]
  6. NORCO [Concomitant]
  7. XANAX [Concomitant]
  8. ZANAFLEX [Concomitant]
  9. SYNTHROID [Concomitant]
  10. LASIX [Concomitant]
  11. POTASSIUM [Concomitant]
  12. NEXIUM [Concomitant]

REACTIONS (2)
  - White blood cell count abnormal [Unknown]
  - Viral infection [Unknown]
